FAERS Safety Report 7421901-6 (Version None)
Quarter: 2011Q2

REPORT INFORMATION
  Report Type: 
  Country: None (occurrence: None)
  Receive Date: 20110418
  Receipt Date: 20110405
  Transmission Date: 20111010
  Serious: Yes (Other)
  Sender: FDA-Public Use
  Company Number: VE-ELI_LILLY_AND_COMPANY-VE201104001850

PATIENT
  Age: 70 Year
  Sex: Female

DRUGS (1)
  1. CYMBALTA [Suspect]

REACTIONS (3)
  - SKIN ULCER [None]
  - PRURITUS [None]
  - URTICARIA [None]
